FAERS Safety Report 5042352-8 (Version None)
Quarter: 2006Q3

REPORT INFORMATION
  Report Type: 
  Country: None (occurrence: None)
  Receive Date: 20060705
  Receipt Date: 20060607
  Transmission Date: 20061208
  Serious: No
  Sender: FDA-Public Use
  Company Number: PHMT2006CA01335

PATIENT
  Sex: Female
  Weight: 60 kg

DRUGS (8)
  1. DIOVAN HCT [Suspect]
     Dosage: 160VALS-12.5HCT MG
     Route: 048
     Dates: start: 20060509, end: 20060519
  2. CELEBREX [Concomitant]
     Dosage: 100 MG, BID
     Dates: start: 20040619, end: 20040620
  3. CELEBREX [Concomitant]
     Dosage: 100 MG, BID
  4. FLEXERIL [Concomitant]
     Dosage: 10 MG Q 6 HOURS PRN
     Dates: start: 20060419
  5. SINGULAIR [Concomitant]
     Dosage: 10 MG QHS
     Dates: start: 20040101
  6. SYMBICORT TURBUHALER ^DRACO^ [Concomitant]
     Dosage: 6/200 MG QHS
     Dates: start: 20040101
  7. ZOCOR ^MERCK FROSST^ [Concomitant]
     Dosage: 10 MG
     Dates: start: 20040101
  8. SYNTHROID [Concomitant]
     Dosage: 0.025 QD
     Dates: start: 20041124

REACTIONS (6)
  - ANXIETY [None]
  - BLOOD PRESSURE INCREASED [None]
  - HEADACHE [None]
  - HEART RATE INCREASED [None]
  - PALPITATIONS [None]
  - PANIC ATTACK [None]
